FAERS Safety Report 24970781 (Version 1)
Quarter: 2025Q1

REPORT INFORMATION
  Report Type: Spontaneous
  Country: US (occurrence: US)
  Receive Date: 20250214
  Receipt Date: 20250214
  Transmission Date: 20250409
  Serious: No
  Sender: NOVARTIS
  Company Number: US-002147023-NVSC2025US022873

PATIENT
  Age: 52 Year
  Sex: Female

DRUGS (1)
  1. ILARIS [Suspect]
     Active Substance: CANAKINUMAB
     Indication: Product used for unknown indication
     Dosage: 300 MG, Q4W
     Route: 058

REACTIONS (4)
  - Incorrect dose administered [Not Recovered/Not Resolved]
  - Device leakage [Not Recovered/Not Resolved]
  - Needle issue [Not Recovered/Not Resolved]
  - Product closure issue [Not Recovered/Not Resolved]

NARRATIVE: CASE EVENT DATE: 20250205
